FAERS Safety Report 16962375 (Version 3)
Quarter: 2019Q4

REPORT INFORMATION
  Report Type: Spontaneous
  Country: FR (occurrence: FR)
  Receive Date: 20191025
  Receipt Date: 20191217
  Transmission Date: 20200122
  Serious: Yes (Death, Life-Threatening, Other)
  Sender: FDA-Public Use
  Company Number: FR-PFIZER INC-2019460195

PATIENT

DRUGS (6)
  1. BACTRIM [Suspect]
     Active Substance: SULFAMETHOXAZOLE\TRIMETHOPRIM
     Dosage: 1 DF, 3X/DAY (1 TABLET)
     Route: 048
     Dates: start: 20190330
  2. MICAFUNGIN. [Suspect]
     Active Substance: MICAFUNGIN SODIUM
     Dosage: 50 MG, UNK
     Route: 042
     Dates: start: 20190401, end: 20190419
  3. TAZOCILLINE [Suspect]
     Active Substance: PIPERACILLIN SODIUM\TAZOBACTAM SODIUM
     Dosage: UNK, 3X/DAY
     Route: 042
     Dates: start: 20190328, end: 20190409
  4. RINGERS LACTATE [Suspect]
     Active Substance: CALCIUM CHLORIDE\POTASSIUM CHLORIDE\SODIUM LACTATE
     Dosage: UNK
     Route: 042
     Dates: start: 20190331, end: 20190407
  5. VYXEOS [Suspect]
     Active Substance: CYTARABINE\DAUNORUBICIN
     Indication: ACUTE MYELOID LEUKAEMIA
     Dosage: 1.8 IU, (1.8 IU, D1, 3, 5)
     Route: 042
     Dates: start: 20190401, end: 20190405
  6. VALACICLOVIR [Suspect]
     Active Substance: VALACYCLOVIR HYDROCHLORIDE
     Dosage: 500 MG, 2X/DAY
     Route: 048
     Dates: start: 20190330, end: 20190416

REACTIONS (12)
  - Faecaloma [Fatal]
  - Pleural effusion [Fatal]
  - Shock haemorrhagic [Fatal]
  - Hypoxia [Fatal]
  - Rectal haemorrhage [Fatal]
  - Haemorrhagic stroke [Fatal]
  - Large intestine perforation [Fatal]
  - Diarrhoea [Fatal]
  - Weight increased [Fatal]
  - Peritonitis [Fatal]
  - Gastrooesophageal reflux disease [Fatal]
  - Septic shock [Fatal]

NARRATIVE: CASE EVENT DATE: 20190404
